FAERS Safety Report 24815353 (Version 1)
Quarter: 2025Q1

REPORT INFORMATION
  Report Type: Spontaneous
  Country: US (occurrence: None)
  Receive Date: 20250107
  Receipt Date: 20250107
  Transmission Date: 20250408
  Serious: Yes (Life-Threatening, Disabling, Other)
  Sender: FDA-CTU
  Company Number: None

PATIENT
  Age: 34 Year
  Sex: Male

DRUGS (1)
  1. FLUOXETINE [Suspect]
     Active Substance: FLUOXETINE HYDROCHLORIDE
     Indication: Depression
     Dates: start: 20081101, end: 20091215

REACTIONS (11)
  - Cognitive disorder [None]
  - Emotional disorder [None]
  - Ill-defined disorder [None]
  - Amnesia [None]
  - Sleep disorder [None]
  - Depersonalisation/derealisation disorder [None]
  - Derealisation [None]
  - Apathy [None]
  - Disturbance in attention [None]
  - Tardive dyskinesia [None]
  - Sexual dysfunction [None]

NARRATIVE: CASE EVENT DATE: 20090305
